FAERS Safety Report 5119127-4 (Version None)
Quarter: 2006Q3

REPORT INFORMATION
  Report Type: 
  Country: None (occurrence: None)
  Receive Date: 20060929
  Receipt Date: 20060929
  Transmission Date: 20061208
  Serious: Yes (Other)
  Sender: FDA-Public Use
  Company Number: None

PATIENT
  Sex: Female
  Weight: 72.5755 kg

DRUGS (2)
  1. TENORMIN [Suspect]
     Indication: HYPERTENSION
     Dosage: 25 1 QHS PO
     Route: 048
  2. TENORMIN [Suspect]
     Indication: HYPERTENSION
     Dosage: 50 1 QAM PO

REACTIONS (1)
  - FORMICATION [None]
